FAERS Safety Report 22131617 (Version 1)
Quarter: 2023Q1

REPORT INFORMATION
  Report Type: Spontaneous
  Country: SK (occurrence: SK)
  Receive Date: 20230323
  Receipt Date: 20230323
  Transmission Date: 20230418
  Serious: Yes (Other)
  Sender: FDA-Public Use
  Company Number: None

PATIENT
  Age: 22 Year
  Sex: Female

DRUGS (2)
  1. IBUPROFEN [Suspect]
     Active Substance: IBUPROFEN
     Indication: Product used for unknown indication
     Dosage: UNK
     Route: 065
  2. Beloretin [Concomitant]
     Dosage: 30 MILLIGRAM, QD
     Route: 065
     Dates: start: 202210

REACTIONS (3)
  - Rectal haemorrhage [Recovering/Resolving]
  - Haematochezia [Recovering/Resolving]
  - Anorectal discomfort [Recovering/Resolving]
